FAERS Safety Report 4393414-X (Version None)
Quarter: 2004Q3

REPORT INFORMATION
  Report Type: 
  Country: None (occurrence: None)
  Receive Date: 20040701
  Receipt Date: 20040618
  Transmission Date: 20050211
  Serious: Yes (Other)
  Sender: FDA-Public Use
  Company Number: 2004220333FR

PATIENT
  Age: 61 Year
  Sex: Male

DRUGS (4)
  1. CELEBREX [Suspect]
     Indication: OSTEOARTHRITIS
     Dosage: 200 MG, QD, ORAL
     Route: 048
  2. COTAREG ^NOVARTIS^ (VALSARTAN) [Concomitant]
  3. ASPEGIC 325 [Concomitant]
  4. AMARYL [Concomitant]

REACTIONS (1)
  - RETINAL VEIN THROMBOSIS [None]
